FAERS Safety Report 6688537-6 (Version None)
Quarter: 2010Q2

REPORT INFORMATION
  Report Type: 
  Country: None (occurrence: None)
  Receive Date: 20100420
  Receipt Date: 20100419
  Transmission Date: 20101027
  Serious: Yes (Hospitalization)
  Sender: FDA-Public Use
  Company Number: A0855460A

PATIENT
  Sex: Female
  Weight: 63.2 kg

DRUGS (4)
  1. ALLI [Suspect]
     Indication: DRUG USE FOR UNKNOWN INDICATION
     Route: 048
  2. CALCIUM CARBONATE + VITAMIN D [Concomitant]
     Dosage: 400MG PER DAY
  3. HERBAL MEDICATION [Concomitant]
  4. MELATONIN [Concomitant]
     Indication: SLEEP DISORDER
     Dosage: .75MG TWO TIMES PER WEEK

REACTIONS (7)
  - ABDOMINAL DISTENSION [None]
  - ALANINE AMINOTRANSFERASE INCREASED [None]
  - ANXIETY [None]
  - ASPARTATE AMINOTRANSFERASE INCREASED [None]
  - DEHYDRATION [None]
  - HEPATOTOXICITY [None]
  - NONSPECIFIC REACTION [None]
